FAERS Safety Report 17077405 (Version 8)
Quarter: 2020Q2

REPORT INFORMATION
  Report Type: Spontaneous
  Country: AR (occurrence: AR)
  Receive Date: 20191126
  Receipt Date: 20200417
  Transmission Date: 20200713
  Serious: Yes (Other)
  Sender: FDA-Public Use
  Company Number: AR-MYLANLABS-2019M1068601

PATIENT
  Age: 33 Year
  Sex: Male

DRUGS (1)
  1. LAPENAX [Suspect]
     Active Substance: CLOZAPINE
     Indication: PRODUCT USED FOR UNKNOWN INDICATION
     Dosage: UNK
     Dates: start: 20170501

REACTIONS (9)
  - Red blood cell count decreased [Recovering/Resolving]
  - Lymphocyte count increased [Recovering/Resolving]
  - Neutrophil count increased [Recovered/Resolved]
  - Eosinophil count increased [Recovering/Resolving]
  - Neutropenia [Recovered/Resolved]
  - Haematocrit decreased [Recovered/Resolved]
  - Lymphocyte count decreased [Recovered/Resolved]
  - Haemoglobin decreased [Recovering/Resolving]
  - Leukocytosis [Recovered/Resolved]

NARRATIVE: CASE EVENT DATE: 20190719
